FAERS Safety Report 10077431 (Version 2)
Quarter: 2014Q2

REPORT INFORMATION
  Report Type: Spontaneous
  Country: US (occurrence: US)
  Receive Date: 20140414
  Receipt Date: 20140414
  Transmission Date: 20141212
  Serious: No
  Sender: FDA-Public Use
  Company Number: US-BANPHARM-20131514

PATIENT
  Age: 47 Year
  Sex: Female
  Weight: 120.65 kg

DRUGS (5)
  1. ALEVE LIQUID GELS 220 MG [Suspect]
     Indication: PAIN IN EXTREMITY
     Dosage: 2 DF, PRN,
     Route: 048
  2. BAYER ASPIRIN 81 MG [Concomitant]
  3. LOZARTIN [Concomitant]
  4. HYDROCHLOROTHYAZIDE [Concomitant]
  5. METFORMIN [Concomitant]

REACTIONS (2)
  - Drug ineffective [Unknown]
  - Incorrect dose administered [Unknown]
